FAERS Safety Report 4485715-1 (Version None)
Quarter: 2004Q4

REPORT INFORMATION
  Report Type: 
  Country: None (occurrence: None)
  Receive Date: 20041026
  Receipt Date: 20041004
  Transmission Date: 20050328
  Serious: Yes (Hospitalization)
  Sender: FDA-Public Use
  Company Number: JP-GLAXOSMITHKLINE-B0347536A

PATIENT
  Age: 72 Year
  Sex: Female
  Weight: 47 kg

DRUGS (6)
  1. PAXIL [Suspect]
     Indication: DEPRESSION
     Route: 048
     Dates: end: 20040314
  2. ZYPREXA [Suspect]
     Indication: DELUSION
     Route: 048
     Dates: start: 20040309, end: 20040313
  3. AMLODIN [Concomitant]
     Indication: HYPERTENSION
     Dosage: 5MG PER DAY
     Route: 048
     Dates: start: 20040213
  4. MAGLAX [Concomitant]
     Indication: CONSTIPATION
     Dosage: 990MG PER DAY
     Route: 048
  5. PANTOSIN [Concomitant]
     Indication: CONSTIPATION
     Dosage: 1200MG PER DAY
     Route: 048
  6. DEPAS [Concomitant]
     Indication: INSOMNIA
     Dosage: 1MG PER DAY
     Route: 048

REACTIONS (9)
  - DELIRIUM [None]
  - DIARRHOEA [None]
  - HYPERHIDROSIS [None]
  - MYOCLONUS [None]
  - PYREXIA [None]
  - RESTLESSNESS [None]
  - SEROTONIN SYNDROME [None]
  - TENSION [None]
  - TREMOR [None]
